FAERS Safety Report 22209328 (Version 4)
Quarter: 2023Q4

REPORT INFORMATION
  Report Type: Report from Study
  Country: US (occurrence: US)
  Receive Date: 20230413
  Receipt Date: 20231228
  Transmission Date: 20240109
  Serious: Yes (Other)
  Sender: FDA-Public Use
  Company Number: US-ABBVIE-4726760

PATIENT
  Age: 41 Year
  Sex: Female
  Weight: 63 kg

DRUGS (10)
  1. HUMIRA [Suspect]
     Active Substance: ADALIMUMAB
     Indication: Psoriasis
     Dosage: FORM STRENGTH: 40 MG
     Route: 058
     Dates: start: 20211220
  2. HUMIRA [Suspect]
     Active Substance: ADALIMUMAB
     Route: 058
  3. HUMIRA [Suspect]
     Active Substance: ADALIMUMAB
     Route: 058
  4. TRAZODONE [Concomitant]
     Active Substance: TRAZODONE HYDROCHLORIDE
     Indication: Sleep disorder therapy
  5. LAMOTRIGINE [Concomitant]
     Active Substance: LAMOTRIGINE
     Indication: Seizure
  6. DILANTIN [Concomitant]
     Active Substance: PHENYTOIN
     Indication: Seizure
  7. METOPROLOL [Concomitant]
     Active Substance: METOPROLOL
     Indication: Cardiac disorder
  8. FLUTICASONE [Concomitant]
     Active Substance: FLUTICASONE
     Indication: Product used for unknown indication
  9. CLINDAMYCIN [Concomitant]
     Active Substance: CLINDAMYCIN
     Indication: Product used for unknown indication
  10. CLOBETASOL PROPIONATE [Concomitant]
     Active Substance: CLOBETASOL PROPIONATE
     Indication: Product used for unknown indication

REACTIONS (9)
  - Seizure [Not Recovered/Not Resolved]
  - Heart rate increased [Not Recovered/Not Resolved]
  - Folliculitis [Unknown]
  - Cardiac disorder [Unknown]
  - Psoriasis [Not Recovered/Not Resolved]
  - Muscle strain [Unknown]
  - Tendon rupture [Unknown]
  - Road traffic accident [Unknown]
  - Memory impairment [Unknown]

NARRATIVE: CASE EVENT DATE: 20230301
